FAERS Safety Report 9608796 (Version 1)
Quarter: 2013Q4

REPORT INFORMATION
  Report Type: Spontaneous
  Country: FR (occurrence: FR)
  Receive Date: 20131009
  Receipt Date: 20131009
  Transmission Date: 20140711
  Serious: Yes (Hospitalization)
  Sender: FDA-Public Use
  Company Number: FR-PFIZER INC-2013285819

PATIENT
  Age: 53 Year
  Sex: Female

DRUGS (4)
  1. ZOLOFT [Suspect]
     Indication: DEMENTIA
     Dosage: 50 MG, 1X/DAY
     Route: 048
     Dates: start: 201206
  2. LEVOTHYROX [Concomitant]
     Dosage: 75
  3. COOLMETEC [Concomitant]
     Indication: HYPERTENSION
     Dosage: UNK
     Dates: start: 201204
  4. VASTEN [Concomitant]
     Dosage: 40

REACTIONS (6)
  - Hypertension [Recovered/Resolved]
  - Headache [Recovered/Resolved]
  - General physical health deterioration [Unknown]
  - Asthenia [Unknown]
  - Somnolence [Unknown]
  - Off label use [Recovered/Resolved]
